FAERS Safety Report 4609028-X (Version None)
Quarter: 2005Q1

REPORT INFORMATION
  Report Type: 
  Country: None (occurrence: None)
  Receive Date: 20050311
  Receipt Date: 20050307
  Transmission Date: 20050727
  Serious: Yes (Hospitalization)
  Sender: FDA-Public Use
  Company Number: KII-2005-0015436

PATIENT
  Age: 58 Year
  Sex: Female

DRUGS (4)
  1. MORPHINE SULFATE [Suspect]
     Dosage: ORAL
     Route: 048
  2. VALPROIC ACID [Suspect]
     Dosage: ORAL
     Route: 048
  3. SSRI() [Suspect]
     Dosage: ORAL
     Route: 048
  4. BENZODIAZEPINE DERIVATIVE() [Suspect]

REACTIONS (6)
  - BOWEL SOUNDS ABNORMAL [None]
  - DRUG SCREEN POSITIVE [None]
  - MENTAL STATUS CHANGES [None]
  - MIOSIS [None]
  - MULTIPLE DRUG OVERDOSE ACCIDENTAL [None]
  - SEDATION [None]
